FAERS Safety Report 25858505 (Version 1)
Quarter: 2025Q3

REPORT INFORMATION
  Report Type: Spontaneous
  Country: CN (occurrence: CN)
  Receive Date: 20250929
  Receipt Date: 20250929
  Transmission Date: 20251021
  Serious: Yes (Life-Threatening, Other)
  Sender: PFIZER
  Company Number: CN-PFIZER INC-PV202500115331

PATIENT
  Age: 50 Year
  Sex: Female
  Weight: 40 kg

DRUGS (6)
  1. MEROPENEM [Suspect]
     Active Substance: MEROPENEM
     Indication: Antibiotic therapy
     Dosage: 0.5 G, 3X/DAY IVGTT ( Q12H)
     Route: 042
     Dates: start: 20240903, end: 20240909
  2. MEROPENEM [Suspect]
     Active Substance: MEROPENEM
     Dosage: 0.5 G, 3X/DAY IVGTT ( Q12H)
     Route: 042
     Dates: start: 20240904, end: 20240909
  3. MEROPENEM [Suspect]
     Active Substance: MEROPENEM
     Dosage: 0.5 G, 3X/DAY IVGTT ( Q12H)
     Route: 042
     Dates: start: 20240906, end: 20240909
  4. POLYMYXIN [Suspect]
     Active Substance: POLYMYXIN
     Indication: Antibiotic therapy
     Dosage: 150 MG, 1X/DAY  (LOADING DOSE 300 MG QD) IVGTT
     Route: 042
     Dates: start: 20240903, end: 20240909
  5. POLYMYXIN [Suspect]
     Active Substance: POLYMYXIN
     Dosage: 150 MG, 1X/DAY  (LOADING DOSE 300 MG QD) IVGTT
     Route: 042
     Dates: start: 20240904, end: 20240909
  6. POLYMYXIN [Suspect]
     Active Substance: POLYMYXIN
     Dosage: 150 MG, 1X/DAY  (LOADING DOSE 300 MG QD) IVGTT
     Route: 042
     Dates: start: 20240906, end: 20240909

REACTIONS (1)
  - Pancytopenia [Unknown]

NARRATIVE: CASE EVENT DATE: 20240906
